FAERS Safety Report 7240245-9 (Version None)
Quarter: 2011Q1

REPORT INFORMATION
  Report Type: 
  Country: None (occurrence: None)
  Receive Date: 20110113
  Receipt Date: 20110104
  Transmission Date: 20110831
  Serious: Yes (Other)
  Sender: FDA-Public Use
  Company Number: 2010SP058370

PATIENT
  Age: 37 Year
  Sex: Female
  Weight: 80 kg

DRUGS (1)
  1. DESOGESTREL 0.075  (DESOGESTREL /00754001/) [Suspect]
     Indication: CONTRACEPTION
     Dosage: 75 MG;QD
     Dates: start: 20100901, end: 20101001

REACTIONS (2)
  - ANGINA UNSTABLE [None]
  - PRODUCT SUBSTITUTION ISSUE [None]
